FAERS Safety Report 16673620 (Version 4)
Quarter: 2019Q4

REPORT INFORMATION
  Report Type: Spontaneous
  Country: DK (occurrence: DK)
  Receive Date: 20190806
  Receipt Date: 20191025
  Transmission Date: 20200122
  Serious: Yes (Hospitalization, Other)
  Sender: FDA-Public Use
  Company Number: DK-PFIZER INC-2019329865

PATIENT
  Age: 50 Year
  Sex: Female
  Weight: 62 kg

DRUGS (7)
  1. FIASP [Interacting]
     Active Substance: INSULIN ASPART
     Dosage: DOSE INCREASED (FREQUENCY INCREASED)
     Route: 058
  2. PANTOPRAZOLE [Concomitant]
     Active Substance: PANTOPRAZOLE
     Dosage: 40 MG, (FOR 3 DAYS)
     Route: 065
  3. MEDROL [Suspect]
     Active Substance: METHYLPREDNISOLONE
     Indication: MULTIPLE SCLEROSIS
     Dosage: 1000 MG, 1X/DAY (10 X 100 MG IN THE MORNING)
     Route: 048
  4. FIASP [Interacting]
     Active Substance: INSULIN ASPART
     Indication: TYPE 1 DIABETES MELLITUS
     Dosage: 16 IU, 1X/DAY
     Route: 058
     Dates: start: 20180214
  5. LEVEMIR [Concomitant]
     Active Substance: INSULIN DETEMIR
     Dosage: UNK
     Route: 065
  6. FIASP [Interacting]
     Active Substance: INSULIN ASPART
     Dosage: 52 IU, UNK (DURING THE RECENT 16 HOURS)
     Route: 058
  7. LEVEMIR [Concomitant]
     Active Substance: INSULIN DETEMIR
     Indication: TYPE 1 DIABETES MELLITUS
     Dosage: INCREASED HER DOSE OF LEVEMIR WITH 25%
     Route: 065

REACTIONS (7)
  - Hyperthyroidism [Unknown]
  - Myocardial ischaemia [Unknown]
  - Acute myocardial infarction [Unknown]
  - Therapeutic product effect delayed [Unknown]
  - Blood glucose increased [Recovered/Resolved]
  - Multiple sclerosis [Unknown]
  - Drug interaction [Unknown]

NARRATIVE: CASE EVENT DATE: 20190628
